FAERS Safety Report 4875744-8 (Version None)
Quarter: 2006Q1

REPORT INFORMATION
  Report Type: 
  Country: None (occurrence: None)
  Receive Date: 20060105
  Receipt Date: 20060104
  Transmission Date: 20060701
  Serious: Yes (Hospitalization, Other)
  Sender: FDA-Public Use
  Company Number: HQWYE350409SEP05

PATIENT
  Age: 47 Year
  Sex: Male

DRUGS (10)
  1. RAPAMUNE [Suspect]
     Indication: PROPHYLAXIS AGAINST TRANSPLANT REJECTION
     Dosage: 6 MG 1X PER 1 DAY ORAL; 2 MG 1X PER 1 DAY; 3 MG, 1X PER 1 DAY ORAL; 5 MG 1X PER 1 DAY ORAL
     Route: 048
     Dates: start: 20050306, end: 20050306
  2. RAPAMUNE [Suspect]
     Indication: PROPHYLAXIS AGAINST TRANSPLANT REJECTION
     Dosage: 6 MG 1X PER 1 DAY ORAL; 2 MG 1X PER 1 DAY; 3 MG, 1X PER 1 DAY ORAL; 5 MG 1X PER 1 DAY ORAL
     Route: 048
     Dates: start: 20050307, end: 20050322
  3. RAPAMUNE [Suspect]
     Indication: PROPHYLAXIS AGAINST TRANSPLANT REJECTION
     Dosage: 6 MG 1X PER 1 DAY ORAL; 2 MG 1X PER 1 DAY; 3 MG, 1X PER 1 DAY ORAL; 5 MG 1X PER 1 DAY ORAL
     Route: 048
     Dates: start: 20050323, end: 20050413
  4. RAPAMUNE [Suspect]
     Indication: PROPHYLAXIS AGAINST TRANSPLANT REJECTION
     Dosage: 6 MG 1X PER 1 DAY ORAL; 2 MG 1X PER 1 DAY; 3 MG, 1X PER 1 DAY ORAL; 5 MG 1X PER 1 DAY ORAL
     Route: 048
     Dates: start: 20050414, end: 20050810
  5. CYCLOSPORINE [Concomitant]
  6. PREDNISONE [Concomitant]
  7. AMLODIPINE [Concomitant]
  8. ATENOLOL [Concomitant]
  9. SULFAMETHOXAZOLE + TRIMETHOPRIM [Concomitant]
  10. CLONIDINE [Concomitant]

REACTIONS (5)
  - COMPLICATIONS OF TRANSPLANTED KIDNEY [None]
  - HAEMODIALYSIS [None]
  - KIDNEY TRANSPLANT REJECTION [None]
  - NEPHROPATHY TOXIC [None]
  - URINARY TRACT INFECTION [None]
